FAERS Safety Report 22625430 (Version 1)
Quarter: 2023Q2

REPORT INFORMATION
  Report Type: Spontaneous
  Country: JP (occurrence: JP)
  Receive Date: 20230621
  Receipt Date: 20230621
  Transmission Date: 20230722
  Serious: Yes (Hospitalization, Other)
  Sender: FDA-Public Use
  Company Number: JP-SUNPHARMA-2023R1-392950AA

PATIENT
  Age: 8 Decade
  Sex: Male
  Weight: 44.5 kg

DRUGS (28)
  1. SYMMETREL [Suspect]
     Active Substance: AMANTADINE HYDROCHLORIDE
     Indication: Parkinson^s disease
     Dosage: 100 MILLIGRAM, DAILY
     Route: 048
  2. SYMMETREL [Suspect]
     Active Substance: AMANTADINE HYDROCHLORIDE
     Dosage: 100 MILLIGRAM, DAILY
     Route: 048
  3. WARFARIN [Interacting]
     Active Substance: WARFARIN
     Indication: Product used for unknown indication
     Dosage: 2 MILLIGRAM, DAILY
     Route: 048
  4. WARFARIN [Interacting]
     Active Substance: WARFARIN
     Dosage: 1 MILLIGRAM, DAILY
     Route: 048
  5. REMDESIVIR [Interacting]
     Active Substance: REMDESIVIR
     Indication: Coronavirus test positive
     Dosage: 200 MILLIGRAM, DAILY
     Route: 065
  6. REMDESIVIR [Interacting]
     Active Substance: REMDESIVIR
     Dosage: 100 MILLIGRAM, DAILY
     Route: 065
  7. CARBIDOPA\LEVODOPA [Suspect]
     Active Substance: CARBIDOPA\LEVODOPA
     Indication: Parkinson^s disease
     Dosage: 600 MILLIGRAM, DAILY
     Route: 048
  8. CARBIDOPA\LEVODOPA [Suspect]
     Active Substance: CARBIDOPA\LEVODOPA
     Dosage: 600 MILLIGRAM, DAILY
     Route: 048
  9. DROXIDOPA [Suspect]
     Active Substance: DROXIDOPA
     Indication: Parkinson^s disease
     Dosage: 100 MILLIGRAM, DAILY
     Route: 048
  10. DROXIDOPA [Suspect]
     Active Substance: DROXIDOPA
     Dosage: 100 MILLIGRAM, DAILY
     Route: 048
  11. PERGOLIDE MESILATE [Concomitant]
     Indication: Product used for unknown indication
     Dosage: 150 MICROGRAM, DAILY
     Route: 048
  12. PERGOLIDE MESILATE [Concomitant]
     Dosage: 150 MICROGRAM, DAILY
     Route: 048
  13. ISTRADEFYLLINE [Concomitant]
     Active Substance: ISTRADEFYLLINE
     Indication: Product used for unknown indication
     Dosage: 20 MILLIGRAM, DAILY
     Route: 048
  14. ISTRADEFYLLINE [Concomitant]
     Active Substance: ISTRADEFYLLINE
     Dosage: 20 MILLIGRAM, DAILY
     Route: 048
  15. CLONAZEPAM [Concomitant]
     Active Substance: CLONAZEPAM
     Indication: Product used for unknown indication
     Dosage: 0.5 MILLIGRAM, DAILY
     Route: 048
  16. CLONAZEPAM [Concomitant]
     Active Substance: CLONAZEPAM
     Dosage: 0.5 MILLIGRAM, DAILY
     Route: 048
  17. QUETIAPINE FUMARATE [Concomitant]
     Active Substance: QUETIAPINE FUMARATE
     Indication: Product used for unknown indication
     Dosage: 25 MILLIGRAM, DAILY
     Route: 048
  18. QUETIAPINE FUMARATE [Concomitant]
     Active Substance: QUETIAPINE FUMARATE
     Dosage: 25 MILLIGRAM, DAILY
     Route: 048
  19. AMBROXOL HYDROCHLORIDE [Concomitant]
     Active Substance: AMBROXOL HYDROCHLORIDE
     Indication: Product used for unknown indication
     Dosage: 45 MILLIGRAM, DAILY
     Route: 048
  20. AMBROXOL HYDROCHLORIDE [Concomitant]
     Active Substance: AMBROXOL HYDROCHLORIDE
     Dosage: 45 MILLIGRAM, DAILY
     Route: 048
  21. CARBOCYSTEINE [Concomitant]
     Active Substance: CARBOCYSTEINE
     Indication: Product used for unknown indication
     Dosage: 1500 MILLIGRAM, DAILY
     Route: 048
  22. CARBOCYSTEINE [Concomitant]
     Active Substance: CARBOCYSTEINE
     Dosage: 1500 MILLIGRAM, DAILY
     Route: 048
  23. ELDECALCITOL [Concomitant]
     Active Substance: ELDECALCITOL
     Indication: Product used for unknown indication
     Dosage: 0.75 MICROGRAM, DAILY
     Route: 048
  24. ELDECALCITOL [Concomitant]
     Active Substance: ELDECALCITOL
     Dosage: 0.75 MICROGRAM, DAILY
     Route: 048
  25. MAGNESIUM OXIDE [Concomitant]
     Active Substance: MAGNESIUM OXIDE
     Indication: Product used for unknown indication
     Dosage: 2000 MILLIGRAM, DAILY
     Route: 048
  26. MAGNESIUM OXIDE [Concomitant]
     Active Substance: MAGNESIUM OXIDE
     Dosage: 2000 MILLIGRAM, DAILY
     Route: 048
  27. SOTROVIMAB [Concomitant]
     Active Substance: SOTROVIMAB
     Indication: Coronavirus test positive
     Dosage: 500 MILLIGRAM, DAILY
     Route: 065
  28. AMPICILLIN SODIUM\SULBACTAM SODIUM [Concomitant]
     Active Substance: AMPICILLIN SODIUM\SULBACTAM SODIUM
     Indication: Pneumonia bacterial
     Dosage: 1.5 MILLIGRAM, BID
     Route: 065

REACTIONS (5)
  - Coronavirus test positive [Recovering/Resolving]
  - Neuroleptic malignant syndrome [Recovering/Resolving]
  - Pneumonia bacterial [Recovering/Resolving]
  - Prothrombin time ratio increased [Recovering/Resolving]
  - Drug interaction [Recovering/Resolving]
